FAERS Safety Report 8204738-X (Version None)
Quarter: 2012Q1

REPORT INFORMATION
  Report Type: 
  Country: None (occurrence: None)
  Receive Date: 20120313
  Receipt Date: 20120229
  Transmission Date: 20120608
  Serious: Yes (Hospitalization, Other)
  Sender: FDA-Public Use
  Company Number: US-ELI_LILLY_AND_COMPANY-US201203000588

PATIENT
  Sex: Female

DRUGS (20)
  1. OMEPRAZOLE [Concomitant]
  2. SOTALOL HCL [Concomitant]
  3. RANITIDINE [Concomitant]
  4. FORTEO [Suspect]
     Dosage: 20 UG, QD
     Route: 058
  5. GUAIFENESIN [Concomitant]
  6. LISINOPRIL [Concomitant]
  7. MIRALAX [Concomitant]
  8. PULMICORT [Concomitant]
  9. FLONASE [Concomitant]
  10. FISH OIL [Concomitant]
  11. POTASSIUM [Concomitant]
  12. ALBUTEROL [Concomitant]
  13. OXYGEN [Concomitant]
     Dosage: UNK, PRN
  14. PRAVASTATIN SODIUM [Concomitant]
  15. LEVOXYL [Concomitant]
  16. FUROSEMIDE [Concomitant]
  17. VITAMIN D [Concomitant]
  18. FORTEO [Suspect]
     Indication: OSTEOPOROSIS
     Dosage: 20 UG, QD
     Route: 058
     Dates: start: 20110101
  19. SPIRIVA [Concomitant]
  20. GUAIFENESIN [Concomitant]

REACTIONS (3)
  - BALANCE DISORDER [None]
  - FALL [None]
  - PELVIC FRACTURE [None]
